FAERS Safety Report 7823678-9 (Version None)
Quarter: 2011Q4

REPORT INFORMATION
  Report Type: 
  Country: None (occurrence: None)
  Receive Date: 20111019
  Receipt Date: 20111011
  Transmission Date: 20120403
  Serious: Yes (Hospitalization)
  Sender: FDA-Public Use
  Company Number: NL-B.I. PHARMACEUTICALS,INC./RIDGEFIELD-2011-DE-05715DE

PATIENT
  Sex: Male
  Weight: 100 kg

DRUGS (8)
  1. SIMVASTATIN [Concomitant]
     Indication: HYPERLIPIDAEMIA
     Dosage: 20 MG
     Route: 048
  2. METFORMIN HCL [Concomitant]
     Indication: DIABETES MELLITUS
     Dosage: 1000 MG
     Route: 048
  3. DABIGATRAN [Suspect]
     Indication: ATRIAL FIBRILLATION
  4. METOPROLOL TARTRATE [Concomitant]
     Indication: ILL-DEFINED DISORDER
     Dosage: 100 MG
     Route: 048
  5. RANITIDINE [Concomitant]
     Indication: PROPHYLAXIS
     Dosage: 300 MG
     Route: 048
  6. VALSARTAN [Concomitant]
     Indication: HYPERTENSION
     Dosage: 320 MG
     Route: 048
  7. DABIGATRAN [Suspect]
     Indication: CEREBROVASCULAR ACCIDENT PROPHYLAXIS
     Route: 048
     Dates: start: 20110720
  8. NOVOMIX [Concomitant]
     Indication: DIABETES MELLITUS
     Dosage: STRENGTH: 18/18 IE
     Route: 058

REACTIONS (1)
  - ACUTE MYOCARDIAL INFARCTION [None]
